FAERS Safety Report 25387936 (Version 1)
Quarter: 2025Q2

REPORT INFORMATION
  Report Type: Spontaneous
  Country: FR (occurrence: FR)
  Receive Date: 20250603
  Receipt Date: 20250603
  Transmission Date: 20250717
  Serious: Yes (Hospitalization)
  Sender: EMD SERONO INC
  Company Number: None

PATIENT
  Age: 35 Year
  Sex: Female
  Weight: 85 kg

DRUGS (5)
  1. CHORIOGONADOTROPIN ALFA [Suspect]
     Active Substance: CHORIOGONADOTROPIN ALFA
     Indication: Controlled ovarian stimulation
     Dosage: INJECTABLE SOLUTION IN PRE-FILLED SYRINGE
     Dates: start: 20241025, end: 20241025
  2. CLOMID [Suspect]
     Active Substance: CLOMIPHENE CITRATE
     Indication: Controlled ovarian stimulation
     Dosage: COMPRESSED
     Dates: start: 20241015, end: 20241019
  3. ESTRADIOL [Suspect]
     Active Substance: ESTRADIOL
     Indication: Controlled ovarian stimulation
     Dates: start: 20241023, end: 20241026
  4. UTROGESTAN [Suspect]
     Active Substance: PROGESTERONE
     Indication: Controlled ovarian stimulation
     Dosage: ORAL OR VAGINAL SOFT CAPSULE
     Dates: start: 20241101, end: 20241115
  5. DUPHASTON [Suspect]
     Active Substance: DYDROGESTERONE
     Indication: Controlled ovarian stimulation
     Dosage: 10 MG X2/D
     Dates: start: 20240930, end: 20241009

REACTIONS (1)
  - Meningioma [Not Recovered/Not Resolved]

NARRATIVE: CASE EVENT DATE: 20250328
